FAERS Safety Report 4741361-3 (Version None)
Quarter: 2005Q3

REPORT INFORMATION
  Report Type: 
  Country: None (occurrence: None)
  Receive Date: 20050803
  Receipt Date: 20050128
  Transmission Date: 20060218
  Serious: Yes (Other)
  Sender: FDA-Public Use
  Company Number: 2005-01-2183

PATIENT
  Age: 42 Year
  Sex: Male
  Weight: 88.4514 kg

DRUGS (2)
  1. RIBASPHERE [Suspect]
     Indication: HEPATITIS C
     Dosage: ORAL
     Route: 048
     Dates: start: 20040801, end: 20050101
  2. INTERFERON INJECTABLE [Suspect]
     Indication: HEPATITIS C
     Dates: start: 20040801

REACTIONS (4)
  - AGGRESSION [None]
  - AGITATION [None]
  - NAUSEA [None]
  - VOMITING [None]
